FAERS Safety Report 9527653 (Version 1)
Quarter: 2013Q3

REPORT INFORMATION
  Report Type: Spontaneous
  Country: US (occurrence: None)
  Receive Date: 20130913
  Receipt Date: 20130913
  Transmission Date: 20140515
  Serious: No
  Sender: FDA-Public Use
  Company Number: None

PATIENT
  Age: 36 Year
  Sex: Male
  Weight: 99.79 kg

DRUGS (2)
  1. OFLOXACIN [Suspect]
     Indication: PROSTATITIS
     Dates: start: 200909
  2. MULTIVITAMIN [Concomitant]

REACTIONS (2)
  - Myalgia [None]
  - Tendon pain [None]
